FAERS Safety Report 17854943 (Version 5)
Quarter: 2020Q4

REPORT INFORMATION
  Report Type: Spontaneous
  Country: US (occurrence: US)
  Receive Date: 20200603
  Receipt Date: 20201008
  Transmission Date: 20210113
  Serious: No
  Sender: FDA-Public Use
  Company Number: US-PFIZER INC-2020111762

PATIENT
  Age: 60 Year
  Sex: Female
  Weight: 65.77 kg

DRUGS (3)
  1. IBRANCE [Suspect]
     Active Substance: PALBOCICLIB
     Dosage: 100 MG, CYCLIC, 21 DAYS ON AND 7 DAYS OFF
     Dates: start: 202002
  2. LETROZOLE. [Suspect]
     Active Substance: LETROZOLE
     Indication: BREAST CANCER
     Dosage: 2.5 MG, 1X/DAY
     Dates: start: 201911
  3. IBRANCE [Suspect]
     Active Substance: PALBOCICLIB
     Indication: BREAST CANCER
     Dosage: 125 MG
     Dates: start: 2019

REACTIONS (6)
  - Weight abnormal [Unknown]
  - Taste disorder [Unknown]
  - White blood cell count decreased [Recovered/Resolved]
  - Decreased appetite [Recovering/Resolving]
  - Neoplasm progression [Unknown]
  - Dysphonia [Unknown]

NARRATIVE: CASE EVENT DATE: 202001
